FAERS Safety Report 7792721-8 (Version None)
Quarter: 2011Q3

REPORT INFORMATION
  Report Type: 
  Country: None (occurrence: None)
  Receive Date: 20110929
  Receipt Date: 20110916
  Transmission Date: 20111222
  Serious: Yes (Hospitalization)
  Sender: FDA-Public Use
  Company Number: 11-583

PATIENT
  Age: 43 Year
  Sex: Male

DRUGS (2)
  1. DEPAKOTE [Suspect]
     Dosage: ORAL
     Route: 048
  2. IBUPROFEN [Suspect]
     Dosage: ORAL
     Route: 048

REACTIONS (12)
  - HYPERAMMONAEMIA [None]
  - RESPIRATORY ALKALOSIS [None]
  - COMA SCALE ABNORMAL [None]
  - HYPERNATRAEMIA [None]
  - OVERDOSE [None]
  - HYPERAMMONAEMIC ENCEPHALOPATHY [None]
  - HYPOCALCAEMIA [None]
  - THROMBOCYTOPENIA [None]
  - METABOLIC ACIDOSIS [None]
  - BLOOD OSMOLARITY INCREASED [None]
  - CONVERSION DISORDER [None]
  - TOXICITY TO VARIOUS AGENTS [None]
